FAERS Safety Report 8499170-8 (Version None)
Quarter: 2012Q2

REPORT INFORMATION
  Report Type: 
  Country: None (occurrence: None)
  Receive Date: 20120405
  Receipt Date: 20100618
  Transmission Date: 20120825
  Serious: Yes (Other)
  Sender: FDA-Public Use
  Company Number: PHHY2010US42454

PATIENT
  Sex: Female

DRUGS (3)
  1. RECLAST [Suspect]
     Dosage: INFUSION
  2. SIMVASTATIN [Concomitant]
  3. ALLEGRA [Concomitant]

REACTIONS (6)
  - BEDRIDDEN [None]
  - ABDOMINAL DISCOMFORT [None]
  - VOMITING [None]
  - PYREXIA [None]
  - HEADACHE [None]
  - NAUSEA [None]
